FAERS Safety Report 14337184 (Version 2)
Quarter: 2018Q2

REPORT INFORMATION
  Report Type: Spontaneous
  Country: US (occurrence: US)
  Receive Date: 20171229
  Receipt Date: 20180615
  Transmission Date: 20180711
  Serious: Yes (Other)
  Sender: FDA-Public Use
  Company Number: US-ASTRAZENECA-2017SF31853

PATIENT
  Age: 66 Year
  Sex: Female
  Weight: 76.7 kg

DRUGS (10)
  1. SYMBICORT [Suspect]
     Active Substance: BUDESONIDE\FORMOTEROL FUMARATE DIHYDRATE
     Indication: EMPHYSEMA
     Dosage: 160/4.5, INHALATION TWO PUFFS TWICE A DAY AS REQUIRED
     Route: 055
     Dates: start: 2017
  2. OXYGEN. [Concomitant]
     Active Substance: OXYGEN
     Dates: start: 2016, end: 2016
  3. SYMBICORT [Suspect]
     Active Substance: BUDESONIDE\FORMOTEROL FUMARATE DIHYDRATE
     Indication: EMPHYSEMA
     Dosage: 160/4.5, INHALATION TWO PUFFS TWICE A DAY
     Route: 055
     Dates: start: 2009
  4. PREDNISONE. [Concomitant]
     Active Substance: PREDNISONE
     Indication: LUNG DISORDER
     Route: 048
  5. SYMBICORT [Suspect]
     Active Substance: BUDESONIDE\FORMOTEROL FUMARATE DIHYDRATE
     Indication: CHRONIC OBSTRUCTIVE PULMONARY DISEASE
     Dosage: 160/4.5, INHALATION TWO PUFFS TWICE A DAY
     Route: 055
     Dates: start: 2009
  6. SYMBICORT [Suspect]
     Active Substance: BUDESONIDE\FORMOTEROL FUMARATE DIHYDRATE
     Indication: CHRONIC OBSTRUCTIVE PULMONARY DISEASE
     Dosage: SYMBICORT LAYING DOWN AND SOMETIMES TAKES 3 PUFFS TWICE A DAY WHEN SHE FEELS SHE NEEDS IT. AS RE...
     Route: 055
  7. SYMBICORT [Suspect]
     Active Substance: BUDESONIDE\FORMOTEROL FUMARATE DIHYDRATE
     Indication: EMPHYSEMA
     Dosage: SYMBICORT LAYING DOWN AND SOMETIMES TAKES 3 PUFFS TWICE A DAY WHEN SHE FEELS SHE NEEDS IT. AS RE...
     Route: 055
  8. SYMBICORT [Suspect]
     Active Substance: BUDESONIDE\FORMOTEROL FUMARATE DIHYDRATE
     Indication: CHRONIC OBSTRUCTIVE PULMONARY DISEASE
     Dosage: 160/4.5, INHALATION TWO PUFFS TWICE A DAY AS REQUIRED
     Route: 055
     Dates: start: 2017
  9. VENTOLIN [Concomitant]
     Active Substance: ALBUTEROL SULFATE
     Dosage: AS REQUIRED
     Route: 055
  10. SINGULAIR [Concomitant]
     Active Substance: MONTELUKAST SODIUM
     Dosage: 10.0MG UNKNOWN
     Route: 065

REACTIONS (8)
  - Intentional product misuse [Not Recovered/Not Resolved]
  - Breast cancer female [Unknown]
  - Road traffic accident [Recovered/Resolved]
  - Tooth loss [Not Recovered/Not Resolved]
  - Wrong technique in product usage process [Recovered/Resolved]
  - Device malfunction [Unknown]
  - Product storage error [Recovered/Resolved]
  - Tympanic membrane perforation [Recovered/Resolved]

NARRATIVE: CASE EVENT DATE: 2014
